FAERS Safety Report 19688548 (Version 1)
Quarter: 2021Q3

REPORT INFORMATION
  Report Type: Spontaneous
  Country: US (occurrence: US)
  Receive Date: 20210811
  Receipt Date: 20210811
  Transmission Date: 20211014
  Serious: No
  Sender: FDA-Public Use
  Company Number: US-SA-2021SA261993

PATIENT
  Age: 77 Year
  Sex: Female

DRUGS (2)
  1. SOTALOL HYDROCHLORIDE. [Interacting]
     Active Substance: SOTALOL HYDROCHLORIDE
     Dosage: UNK
  2. DUPIXENT [Suspect]
     Active Substance: DUPILUMAB
     Indication: DERMATITIS ATOPIC
     Dosage: 300 MG, QOW
     Route: 058
     Dates: start: 201905

REACTIONS (2)
  - Dry eye [Unknown]
  - Drug interaction [Unknown]

NARRATIVE: CASE EVENT DATE: 202104
